FAERS Safety Report 7042569-7 (Version None)
Quarter: 2010Q4

REPORT INFORMATION
  Report Type: 
  Country: None (occurrence: None)
  Receive Date: 20101013
  Receipt Date: 20100204
  Transmission Date: 20110411
  Serious: No
  Sender: FDA-Public Use
  Company Number: US-ASTRAZENECA-2010SE05093

PATIENT
  Sex: Female

DRUGS (1)
  1. SYMBICORT [Suspect]
     Dosage: TOTAL DAILY DOSE: 640 UG
     Route: 055

REACTIONS (5)
  - DRY MOUTH [None]
  - NASAL CONGESTION [None]
  - SWOLLEN TONGUE [None]
  - THROAT IRRITATION [None]
  - TONGUE DISORDER [None]
